FAERS Safety Report 13588929 (Version 1)
Quarter: 2017Q2

REPORT INFORMATION
  Report Type: Other
  Country: None (occurrence: US)
  Receive Date: 20170529
  Receipt Date: 20170529
  Transmission Date: 20170830
  Serious: No
  Sender: FDA-Public Use
  Company Number: US-APOTEX-2017AP009793

PATIENT
  Age: 31 Year
  Sex: Female

DRUGS (1)
  1. CLARISPRAY NASAL ALLERGY [Suspect]
     Active Substance: FLUTICASONE PROPIONATE
     Indication: SEASONAL ALLERGY
     Route: 065

REACTIONS (5)
  - Product odour abnormal [Unknown]
  - Drug effect delayed [Unknown]
  - Insomnia [Unknown]
  - Disease recurrence [Unknown]
  - Drug effect incomplete [Unknown]
